FAERS Safety Report 8761411 (Version 1)
Quarter: 2012Q4

REPORT INFORMATION
  Report Type: 
  Country: US (occurrence: US)
  Receive Date: 20120830
  Receipt Date: 20120830
  Transmission Date: 20130627
  Serious: Yes (Hospitalization, Other)
  Sender: FDA-Public Use
  Company Number: US-JNJFOC-20120811772

PATIENT
  Age: 50 Year
  Sex: Female

DRUGS (6)
  1. TRAMADOL [Suspect]
     Indication: PRODUCT USED FOR UNKNOWN INDICATION
     Dosage: every 4 hours
     Route: 065
  2. FLEXERIL [Suspect]
     Indication: PRODUCT USED FOR UNKNOWN INDICATION
     Route: 065
  3. MORPHINE [Suspect]
     Indication: PRODUCT USED FOR UNKNOWN INDICATION
     Dosage: every 4 hours
     Route: 065
  4. SKELAXIN [Suspect]
     Indication: PRODUCT USED FOR UNKNOWN INDICATION
     Route: 065
  5. MS CONTIN [Suspect]
     Indication: PRODUCT USED FOR UNKNOWN INDICATION
     Dosage: every 12 hours
     Route: 065
  6. AVINZA [Suspect]
     Indication: PRODUCT USED FOR UNKNOWN INDICATION
     Dosage: in the morning
     Route: 065

REACTIONS (4)
  - Hospitalisation [Unknown]
  - Loss of consciousness [Unknown]
  - Ankle fracture [Unknown]
  - Stupor [Unknown]
